FAERS Safety Report 14308495 (Version 2)
Quarter: 2018Q4

REPORT INFORMATION
  Report Type: Report from Study
  Country: IT (occurrence: IT)
  Receive Date: 20171220
  Receipt Date: 20181024
  Transmission Date: 20190204
  Serious: Yes (Life-Threatening, Other)
  Sender: FDA-Public Use
  Company Number: IT-BAYER-2017-240443

PATIENT
  Age: 18 Year
  Sex: Female

DRUGS (1)
  1. ASPIRIN. [Suspect]
     Active Substance: ASPIRIN
     Dosage: UNK

REACTIONS (5)
  - Meibomian gland dysfunction [Recovering/Resolving]
  - Ulcerative keratitis [Recovering/Resolving]
  - Conjunctivitis [Recovering/Resolving]
  - Madarosis [Recovering/Resolving]
  - Toxic epidermal necrolysis [Recovering/Resolving]
